FAERS Safety Report 16706841 (Version 2)
Quarter: 2019Q3

REPORT INFORMATION
  Report Type: Report from Study
  Country: US (occurrence: US)
  Receive Date: 20190815
  Receipt Date: 20190906
  Transmission Date: 20191004
  Serious: Yes (Hospitalization)
  Sender: FDA-Public Use
  Company Number: US-AVEXISPRA-CTR-AVXS12019-0008

PATIENT
  Age: 11 Month
  Sex: Male
  Weight: 8.4 kg

DRUGS (8)
  1. PREDNISOLONE. [Concomitant]
     Active Substance: PREDNISOLONE
  2. NUSINERSEN [Concomitant]
     Active Substance: NUSINERSEN
     Dosage: 12 MILLIGRAM, SINGLE
     Dates: start: 20181012
  3. NUSINERSEN [Concomitant]
     Active Substance: NUSINERSEN
     Dosage: 12 MILLIGRAM, SINGLE
     Dates: start: 20190202
  4. NUSINERSEN [Concomitant]
     Active Substance: NUSINERSEN
     Dosage: 12 MILLIGRAM, SINGLE
     Dates: start: 20180912
  5. AVXS-101 [Suspect]
     Active Substance: ONASEMNOGENE ABEPARVOVEC
     Indication: SPINAL MUSCULAR ATROPHY
     Dosage: 110 X 10^13 VG, SINGLE
     Route: 042
     Dates: start: 20190613, end: 20190613
  6. NUSINERSEN [Concomitant]
     Active Substance: NUSINERSEN
     Dosage: 12 MILLIGRAM, SINGLE
     Dates: start: 20180815
  7. NUSINERSEN [Concomitant]
     Active Substance: NUSINERSEN
     Dosage: 12 MILLIGRAM
     Dates: start: 20180829
  8. ALBUTEROL                          /00139501/ [Concomitant]
     Active Substance: ALBUTEROL
     Dosage: 0.083 PERCENT, Q4H
     Dates: start: 20180806

REACTIONS (1)
  - Vomiting [Recovered/Resolved]

NARRATIVE: CASE EVENT DATE: 20190614
